FAERS Safety Report 11683152 (Version 1)
Quarter: 2015Q4

REPORT INFORMATION
  Report Type: Spontaneous
  Country: US (occurrence: None)
  Receive Date: 20151028
  Receipt Date: 20151028
  Transmission Date: 20160304
  Serious: Yes (Hospitalization)
  Sender: FDA-Public Use
  Company Number: US-ALSI-201500273

PATIENT
  Age: 23 Year
  Sex: Female

DRUGS (1)
  1. NITROUS OXIDE. [Suspect]
     Active Substance: NITROUS OXIDE
     Indication: DRUG ABUSE

REACTIONS (3)
  - Vitamin B12 deficiency [None]
  - Drug abuse [None]
  - Myelopathy [None]
